FAERS Safety Report 9339452 (Version 1)
Quarter: 2013Q2

REPORT INFORMATION
  Report Type: Spontaneous
  Country: US (occurrence: None)
  Receive Date: 20130605
  Receipt Date: 20130605
  Transmission Date: 20140414
  Serious: Yes (Death)
  Sender: FDA-Public Use
  Company Number: 1741582

PATIENT
  Sex: 0

DRUGS (4)
  1. CALCIUM FOLINATE [Suspect]
     Indication: PANCREATIC CARCINOMA
  2. IRINOTECAN HYDROCHLORIDE [Suspect]
     Indication: PANCREATIC CARCINOMA
  3. (OXALIPLATIN) [Suspect]
     Indication: PANCREATIC CARCINOMA
  4. FLUOROURACIL [Suspect]
     Indication: PANCREATIC CARCINOMA

REACTIONS (2)
  - Bacteraemia [None]
  - Febrile neutropenia [None]
